FAERS Safety Report 9397492 (Version 2)
Quarter: 2013Q3

REPORT INFORMATION
  Report Type: Spontaneous
  Country: JP (occurrence: JP)
  Receive Date: 20130712
  Receipt Date: 20130830
  Transmission Date: 20140515
  Serious: Yes (Other)
  Sender: FDA-Public Use
  Company Number: JP-NOVOPROD-382286

PATIENT
  Age: 60 Year
  Sex: Male

DRUGS (3)
  1. SUREPOST [Suspect]
     Indication: TYPE 2 DIABETES MELLITUS
     Dosage: 0.25 MG, QD
     Route: 048
     Dates: start: 201305
  2. SUREPOST [Suspect]
     Dosage: 0.75 MG, QD
     Route: 048
     Dates: end: 20130629
  3. URSO                               /00465701/ [Concomitant]
     Dosage: UNKNOWN
     Route: 048

REACTIONS (1)
  - Hepatitis fulminant [Recovering/Resolving]
